FAERS Safety Report 15584958 (Version 1)
Quarter: 2018Q4

REPORT INFORMATION
  Report Type: Spontaneous
  Country: US (occurrence: US)
  Receive Date: 20181105
  Receipt Date: 20181105
  Transmission Date: 20190205
  Serious: Yes (Hospitalization, Other)
  Sender: FDA-Public Use
  Company Number: None

PATIENT
  Age: 59 Year
  Sex: Male

DRUGS (2)
  1. MAVYRET [Suspect]
     Active Substance: GLECAPREVIR\PIBRENTASVIR
     Indication: CHRONIC HEPATITIS C
     Dates: start: 20180821, end: 20180927
  2. LOSARTAN. [Concomitant]
     Active Substance: LOSARTAN
     Dates: start: 20160826

REACTIONS (8)
  - Upper respiratory tract infection [None]
  - Hepatic encephalopathy [None]
  - Viral infection [None]
  - Hepatic cirrhosis [None]
  - Vomiting [None]
  - Hepatocellular carcinoma [None]
  - Nausea [None]
  - Asthenia [None]

NARRATIVE: CASE EVENT DATE: 20180925
